FAERS Safety Report 8093143-5 (Version None)
Quarter: 2012Q1

REPORT INFORMATION
  Report Type: 
  Country: None (occurrence: None)
  Receive Date: 20120128
  Receipt Date: 20110913
  Transmission Date: 20120608
  Serious: No
  Sender: FDA-Public Use
  Company Number: US-ABBOTT-11P-163-0845022-00

PATIENT
  Sex: Female

DRUGS (9)
  1. CALCIUM CHANNEL BLOCKERS [Concomitant]
  2. IRON INFUSIONS [Concomitant]
     Indication: PRODUCT USED FOR UNKNOWN INDICATION
  3. MAXALT [Concomitant]
     Indication: PRODUCT USED FOR UNKNOWN INDICATION
     Dosage: RESCUE MED
  4. FLAGYL [Concomitant]
     Indication: PRODUCT USED FOR UNKNOWN INDICATION
  5. GABAPENTIN [Concomitant]
  6. CIPROFLOXACIN [Concomitant]
     Indication: PRODUCT USED FOR UNKNOWN INDICATION
  7. HUMIRA [Suspect]
     Indication: PRODUCT USED FOR UNKNOWN INDICATION
     Dates: start: 20070601
  8. GABAPENTIN [Concomitant]
     Indication: MIGRAINE PROPHYLAXIS
  9. CALCIUM CHANNEL BLOCKERS [Concomitant]
     Indication: MIGRAINE PROPHYLAXIS

REACTIONS (9)
  - ARTHRALGIA [None]
  - DYSURIA [None]
  - RASH [None]
  - FEELING ABNORMAL [None]
  - BACK PAIN [None]
  - CONDITION AGGRAVATED [None]
  - MIGRAINE [None]
  - INTESTINAL STENOSIS [None]
  - ADHESION [None]
